FAERS Safety Report 11939355 (Version 1)
Quarter: 2016Q1

REPORT INFORMATION
  Report Type: Spontaneous
  Country: US (occurrence: US)
  Receive Date: 20160122
  Receipt Date: 20160122
  Transmission Date: 20160526
  Serious: No
  Sender: FDA-Public Use
  Company Number: US-PERRIGO-15US010845

PATIENT
  Age: 38 Year
  Sex: Female
  Weight: 41.72 kg

DRUGS (1)
  1. CLINDESSE [Suspect]
     Active Substance: CLINDAMYCIN PHOSPHATE
     Indication: BACTERIAL VAGINOSIS
     Dosage: ONE APPLICATOR FULL, SINGLE
     Route: 067
     Dates: start: 20151007, end: 20151007

REACTIONS (2)
  - Vulvovaginal discomfort [Not Recovered/Not Resolved]
  - Vaginal discharge [Not Recovered/Not Resolved]

NARRATIVE: CASE EVENT DATE: 20151011
